FAERS Safety Report 9943089 (Version 1)
Quarter: 2014Q1

REPORT INFORMATION
  Report Type: Spontaneous
  Country: IT (occurrence: IT)
  Receive Date: 20140303
  Receipt Date: 20140303
  Transmission Date: 20141002
  Serious: Yes (Other)
  Sender: FDA-Public Use
  Company Number: PHHY2014IT021573

PATIENT
  Age: 58 Year
  Sex: Female

DRUGS (4)
  1. PACLITAXEL [Suspect]
     Indication: BREAST CANCER
     Dosage: 140 MG, QW
     Dates: start: 20120913, end: 20121207
  2. HERCEPTIN [Suspect]
     Indication: BREAST CANCER
     Dosage: 480 MG, UNK
     Dates: start: 20120913, end: 20130806
  3. EUTIROX [Concomitant]
     Route: 048
  4. LETROZOLE [Concomitant]
     Dosage: 2.5 MG, UNK
     Dates: start: 20120817

REACTIONS (7)
  - Arthritis [Recovering/Resolving]
  - Oedema peripheral [Recovering/Resolving]
  - Respiratory disorder [Recovering/Resolving]
  - Interstitial lung disease [Recovered/Resolved]
  - Arthralgia [Recovering/Resolving]
  - Pyrexia [Recovered/Resolved]
  - Cough [Recovering/Resolving]
